FAERS Safety Report 7372709-1 (Version None)
Quarter: 2011Q1

REPORT INFORMATION
  Report Type: 
  Country: None (occurrence: None)
  Receive Date: 20110324
  Receipt Date: 20110314
  Transmission Date: 20110831
  Serious: Yes (Other)
  Sender: FDA-Public Use
  Company Number: US-BAYER-2011-024005

PATIENT
  Sex: Female

DRUGS (1)
  1. OCELLA [Suspect]
     Dosage: UNK
     Dates: start: 20081229, end: 20090730

REACTIONS (1)
  - CHOLELITHIASIS [None]
